FAERS Safety Report 9889951 (Version 1)
Quarter: 2014Q1

REPORT INFORMATION
  Report Type: Spontaneous
  Country: US (occurrence: US)
  Receive Date: 20140212
  Receipt Date: 20140212
  Transmission Date: 20141002
  Serious: No
  Sender: FDA-Public Use
  Company Number: US-BIOGENIDEC-2014BI013431

PATIENT
  Sex: Female

DRUGS (8)
  1. AVONEX [Suspect]
     Indication: MULTIPLE SCLEROSIS
     Route: 030
  2. ATENOLOL [Concomitant]
  3. CLONAZEPAM [Concomitant]
  4. CYMBALTA [Concomitant]
  5. FLUOCINOLONE ACETONIDE [Concomitant]
  6. OMEPRAZOLOE [Concomitant]
  7. OXYBUTYNIN CHLORIDE [Concomitant]
  8. RESTASIS [Concomitant]

REACTIONS (1)
  - Dry eye [Unknown]
